FAERS Safety Report 7520945-3 (Version None)
Quarter: 2011Q2

REPORT INFORMATION
  Report Type: 
  Country: None (occurrence: None)
  Receive Date: 20110603
  Receipt Date: 20101201
  Transmission Date: 20111010
  Serious: Yes (Other)
  Sender: FDA-Public Use
  Company Number: FI-BAYER-2010-003412

PATIENT
  Age: 34 Year
  Sex: Female

DRUGS (2)
  1. AERIUS [Concomitant]
     Indication: RHINITIS ALLERGIC
     Dosage: UNK
     Route: 048
  2. MIRENA [Suspect]
     Indication: CONTRACEPTION
     Dosage: 20 ?G, CONT
     Route: 015
     Dates: start: 20100301, end: 20101104

REACTIONS (9)
  - RECTAL HAEMORRHAGE [None]
  - SWELLING [None]
  - VULVOVAGINAL PAIN [None]
  - DYSMENORRHOEA [None]
  - DIZZINESS [None]
  - MENORRHAGIA [None]
  - ABDOMINAL PAIN LOWER [None]
  - DEPRESSION [None]
  - VULVOVAGINAL BURNING SENSATION [None]
